FAERS Safety Report 9380203 (Version 1)
Quarter: 2013Q2

REPORT INFORMATION
  Report Type: Spontaneous
  Country: FR (occurrence: None)
  Receive Date: 20130628
  Receipt Date: 20130628
  Transmission Date: 20140414
  Serious: Yes (Hospitalization, Other)
  Sender: FDA-Public Use
  Company Number: 7217843

PATIENT
  Age: 64 Year
  Sex: Female

DRUGS (7)
  1. LEVOTHYROX 75 (LEVOTHYROXINE SODIUM) [Suspect]
     Indication: HYPOTHYROIDISM
     Route: 048
     Dates: start: 2009
  2. VICTRELIS [Suspect]
     Indication: HEPATITIS C
     Dosage: 3 DF (1 DF, 3 IN 1 D)
     Route: 048
     Dates: start: 20130118, end: 20130503
  3. COPEGUS [Suspect]
     Indication: HEPATITIS C
     Route: 048
     Dates: start: 20130118, end: 20130514
  4. PEGASYS [Suspect]
     Indication: HEPATITIS C
     Dosage: 0.1429 DF (1 DF,1 IN 1 WK)
     Route: 058
     Dates: start: 20130118, end: 20130514
  5. PARACETAMOL (PARACETAMOL) (1 GRAM) (PARACETAMOL) [Concomitant]
  6. NEORECORMON (EPOETIN BETA) (30000 IU (INTERNATIONAL UNIT)) (EPOETIN BETA) [Concomitant]
  7. ESOMEPRAZOLE ) (ESOMEPRAZOLE) (ESOMEPRAZOLE) [Concomitant]

REACTIONS (11)
  - Toxic skin eruption [None]
  - Hypothyroidism [None]
  - Anaemia [None]
  - Drug ineffective [None]
  - Excoriation [None]
  - Mucosal ulceration [None]
  - Prurigo [None]
  - Eczema [None]
  - Vitiligo [None]
  - Orthostatic hypotension [None]
  - Drug interaction [None]
